FAERS Safety Report 7945816-X (Version None)
Quarter: 2011Q4

REPORT INFORMATION
  Report Type: 
  Country: None (occurrence: None)
  Receive Date: 20111129
  Receipt Date: 20111115
  Transmission Date: 20120403
  Serious: Yes (Hospitalization)
  Sender: FDA-Public Use
  Company Number: PHEH2011US009586

PATIENT
  Sex: Female

DRUGS (7)
  1. LEVITRA [Concomitant]
  2. MYCOPHENOLATE MOFETIL [Suspect]
     Dosage: 500 MG, QD
  3. LOVENOX [Concomitant]
     Dosage: 0.4 MG, QD
  4. CYCLOSPORINE [Suspect]
     Dosage: 150 MG, BID
  5. SOLIRIS [Suspect]
     Indication: PAROXYSMAL NOCTURNAL HAEMOGLOBINURIA
     Dosage: 300 MG
     Dates: start: 20101026
  6. SOLIRIS [Suspect]
     Dosage: 900 MG
  7. EXJADE [Concomitant]
     Dosage: 1000 MG, QD

REACTIONS (3)
  - INTESTINAL STENOSIS [None]
  - PAIN [None]
  - INFECTION [None]
